FAERS Safety Report 21644320 (Version 2)
Quarter: 2022Q4

REPORT INFORMATION
  Report Type: Spontaneous
  Country: MX (occurrence: None)
  Receive Date: 20221125
  Receipt Date: 20221213
  Transmission Date: 20230112
  Serious: Yes (Other)
  Sender: FDA-Public Use
  Company Number: 2022A368756

PATIENT
  Age: 2076 Day
  Sex: Male
  Weight: 15 kg

DRUGS (2)
  1. BUDESONIDE\FORMOTEROL FUMARATE DIHYDRATE [Suspect]
     Active Substance: BUDESONIDE\FORMOTEROL FUMARATE DIHYDRATE
     Indication: Asthma
     Dosage: 160/4.5MCG WITH 120 DOSES, EVERY 12 HOURS
     Route: 055
     Dates: start: 202202
  2. VENTOLIN [Concomitant]
     Active Substance: ALBUTEROL SULFATE
     Indication: Asthma

REACTIONS (6)
  - Asthma [Recovering/Resolving]
  - Drug dose omission by device [Unknown]
  - Inappropriate schedule of product administration [Unknown]
  - Device failure [Unknown]
  - Device malfunction [Unknown]
  - Cough [Recovering/Resolving]

NARRATIVE: CASE EVENT DATE: 20221101
